FAERS Safety Report 6242373-3 (Version None)
Quarter: 2009Q2

REPORT INFORMATION
  Report Type: 
  Country: None (occurrence: None)
  Receive Date: 20090622
  Receipt Date: 20090622
  Transmission Date: 20091009
  Serious: No
  Sender: FDA-Public Use
  Company Number: None

PATIENT
  Age: 56 Year
  Sex: Female
  Weight: 65.7716 kg

DRUGS (2)
  1. ZICAM COLD REMEDYGEL SWABS ZICAM [Suspect]
     Indication: NASOPHARYNGITIS
     Dosage: PER DIRECTIONS NASAL
     Route: 045
     Dates: start: 20010101, end: 20090501
  2. ZICAM COLD REMEDYGEL SWABS ZICAM [Suspect]
     Indication: RESPIRATORY DISORDER
     Dosage: PER DIRECTIONS NASAL
     Route: 045
     Dates: start: 20010101, end: 20090501

REACTIONS (1)
  - ANOSMIA [None]
